FAERS Safety Report 15097340 (Version 1)
Quarter: 2018Q3

REPORT INFORMATION
  Report Type: Spontaneous
  Country: US (occurrence: US)
  Receive Date: 20180702
  Receipt Date: 20180702
  Transmission Date: 20181010
  Serious: No
  Sender: FDA-Public Use
  Company Number: US-MYLANLABS-2018M1044347

PATIENT
  Sex: Female

DRUGS (1)
  1. NIFEDIPINE MYLAN [Suspect]
     Active Substance: NIFEDIPINE
     Indication: CARDIAC FAILURE
     Dosage: UNK
     Route: 048

REACTIONS (2)
  - No adverse event [Unknown]
  - Drug dose omission [Recovered/Resolved]
